FAERS Safety Report 19663154 (Version 1)
Quarter: 2021Q3

REPORT INFORMATION
  Report Type: Spontaneous
  Country: US (occurrence: US)
  Receive Date: 20210805
  Receipt Date: 20210805
  Transmission Date: 20211014
  Serious: No
  Sender: FDA-Public Use
  Company Number: US-LANNETT COMPANY, INC.-US-2020LAN000287

PATIENT
  Sex: Male

DRUGS (2)
  1. NIACIN. [Suspect]
     Active Substance: NIACIN
     Indication: BLOOD CHOLESTEROL ABNORMAL
     Dosage: UNK
     Route: 048
  2. NIACIN. [Suspect]
     Active Substance: NIACIN
     Indication: PROPHYLAXIS

REACTIONS (4)
  - Product solubility abnormal [Unknown]
  - Malabsorption [Unknown]
  - Drug ineffective [Unknown]
  - Product residue present [Unknown]
